FAERS Safety Report 24883515 (Version 2)
Quarter: 2025Q1

REPORT INFORMATION
  Report Type: Spontaneous
  Country: JP (occurrence: JP)
  Receive Date: 20250124
  Receipt Date: 20250313
  Transmission Date: 20250408
  Serious: Yes (Death, Other)
  Sender: SANDOZ
  Company Number: JP-SANDOZ-SDZ2025JP004301

PATIENT
  Age: 34 Year
  Sex: Female

DRUGS (7)
  1. CARBOPLATIN [Suspect]
     Active Substance: CARBOPLATIN
     Indication: Breast cancer
     Route: 065
     Dates: start: 2013
  2. CYCLOPHOSPHAMIDE [Suspect]
     Active Substance: CYCLOPHOSPHAMIDE
     Indication: Thyroid B-cell lymphoma
     Route: 065
     Dates: start: 2013
  3. DOXORUBICIN HYDROCHLORIDE [Suspect]
     Active Substance: DOXORUBICIN HYDROCHLORIDE
     Indication: Thyroid B-cell lymphoma
     Route: 065
     Dates: start: 2013
  4. PACLITAXEL [Suspect]
     Active Substance: PACLITAXEL
     Indication: Breast cancer
     Route: 065
     Dates: start: 2013
  5. PREDNISOLONE [Suspect]
     Active Substance: PREDNISOLONE
     Indication: Thyroid B-cell lymphoma
     Route: 065
     Dates: start: 2013
  6. RITUXIMAB [Suspect]
     Active Substance: RITUXIMAB
     Indication: Thyroid B-cell lymphoma
     Route: 065
     Dates: start: 2013
  7. VINCRISTINE SULFATE [Suspect]
     Active Substance: VINCRISTINE SULFATE
     Indication: Thyroid B-cell lymphoma
     Route: 065
     Dates: start: 2013

REACTIONS (1)
  - Myelodysplastic syndrome [Fatal]
